FAERS Safety Report 8529983-5 (Version None)
Quarter: 2012Q3

REPORT INFORMATION
  Report Type: 
  Country: None (occurrence: None)
  Receive Date: 20120723
  Receipt Date: 20110608
  Transmission Date: 20120928
  Serious: No
  Sender: FDA-Public Use
  Company Number: US-GLAXOSMITHKLINE-A0930773A

PATIENT
  Age: 85 Year
  Sex: Female

DRUGS (5)
  1. LEVOTHYROXINE SODIUM [Concomitant]
  2. DIOVAN [Concomitant]
  3. LANOXIN [Concomitant]
  4. DYAZIDE [Suspect]
     Indication: HYPERTENSION
     Route: 048
  5. ALEVE [Concomitant]

REACTIONS (11)
  - BLOOD CREATININE INCREASED [None]
  - BLOOD POTASSIUM INCREASED [None]
  - DYSPNOEA [None]
  - DERMATITIS [None]
  - HAEMOGLOBIN DECREASED [None]
  - FATIGUE [None]
  - BLOOD CALCIUM INCREASED [None]
  - MUSCULAR WEAKNESS [None]
  - SOMNOLENCE [None]
  - MUSCLE SPASMS [None]
  - FLUID RETENTION [None]
